FAERS Safety Report 10039958 (Version 2)
Quarter: 2018Q2

REPORT INFORMATION
  Report Type: Spontaneous
  Country: DE (occurrence: DE)
  Receive Date: 20140326
  Receipt Date: 20180626
  Transmission Date: 20180711
  Serious: Yes (Other)
  Sender: FDA-Public Use
  Company Number: PHHY2014DE031709

PATIENT
  Age: 41 Year
  Sex: Male

DRUGS (6)
  1. ALPHA LIPOIC ACID [Concomitant]
     Active Substance: .ALPHA.-LIPOIC ACID
     Indication: DEAFNESS NEUROSENSORY
     Dosage: UNKNOWN
     Route: 065
  2. METFORMIN [Suspect]
     Active Substance: METFORMIN HYDROCHLORIDE
     Indication: TYPE 2 DIABETES MELLITUS
     Dosage: 1500 MG, TID
     Route: 065
  3. PREDNISOLONE. [Concomitant]
     Active Substance: PREDNISOLONE
     Dosage: 1000 MG, UNK
     Route: 065
  4. INSULIN [Suspect]
     Active Substance: INSULIN NOS
     Indication: TYPE 2 DIABETES MELLITUS
     Dosage: UNK
     Route: 065
  5. PREDNISOLONE. [Concomitant]
     Active Substance: PREDNISOLONE
     Indication: DEAFNESS NEUROSENSORY
     Dosage: 250 MG, QD
     Route: 065
  6. INSULIN GLARGINE [Concomitant]
     Active Substance: INSULIN GLARGINE
     Indication: TYPE 2 DIABETES MELLITUS
     Dosage: UNKNOWN
     Route: 065

REACTIONS (15)
  - Alanine aminotransferase increased [Unknown]
  - Jaundice [Unknown]
  - Blood bilirubin increased [Unknown]
  - Scleral discolouration [Unknown]
  - Aspartate aminotransferase increased [Unknown]
  - Rash [Recovered/Resolved]
  - Drug-induced liver injury [Recovered/Resolved]
  - Gamma-glutamyltransferase increased [Unknown]
  - Faeces discoloured [Unknown]
  - Hepatic steatosis [Unknown]
  - Pruritus [Recovered/Resolved]
  - Blood alkaline phosphatase increased [Unknown]
  - Fatigue [Unknown]
  - Chromaturia [Unknown]
  - Eosinophilia [Unknown]
